FAERS Safety Report 8419073-4 (Version None)
Quarter: 2012Q2

REPORT INFORMATION
  Report Type: 
  Country: None (occurrence: None)
  Receive Date: 20120607
  Receipt Date: 20120605
  Transmission Date: 20120825
  Serious: Yes (Death, Hospitalization, Other)
  Sender: FDA-Public Use
  Company Number: PHEH2005US10701

PATIENT
  Sex: Female
  Weight: 90.702 kg

DRUGS (19)
  1. ZOMETA [Suspect]
     Indication: PROPHYLAXIS
     Dosage: 4 MG, QMO
     Route: 042
     Dates: start: 20020129, end: 20020814
  2. ARIMIDEX [Concomitant]
     Indication: BREAST CANCER
  3. PREVACID [Concomitant]
  4. LORAZEPAM [Concomitant]
     Dosage: 5 MG, UNK
  5. LORAZEPAM [Concomitant]
     Dosage: 1 MG, TID
     Route: 048
  6. ZOFRAN [Concomitant]
  7. PROZAC [Concomitant]
     Dosage: 20 MG, BID
  8. AREDIA [Suspect]
     Indication: PROPHYLAXIS
     Dosage: 90 MG, QMO
     Route: 042
     Dates: start: 20000807, end: 20020107
  9. CYCLOPHOSPHAMIDE [Concomitant]
     Indication: BREAST CANCER
  10. PRINIVIL [Concomitant]
  11. FASLODEX [Concomitant]
     Indication: BREAST CANCER
  12. IRESSA [Concomitant]
  13. FLUOROURACIL [Concomitant]
     Indication: BREAST CANCER
  14. COUMADIN [Concomitant]
  15. ZESTRIL [Concomitant]
  16. ADRIAMYCIN PFS [Concomitant]
     Indication: BREAST CANCER
  17. XELODA [Concomitant]
     Indication: BREAST CANCER
  18. METOPROLOL TARTRATE [Concomitant]
     Dosage: 50 MG, QD
  19. TAXOL [Concomitant]

REACTIONS (52)
  - DENTAL CARIES [None]
  - PURULENCE [None]
  - HYPOPHAGIA [None]
  - PERIODONTAL DISEASE [None]
  - CARDIOMEGALY [None]
  - ORAL PAIN [None]
  - FISTULA [None]
  - DEPRESSION [None]
  - RENAL FAILURE [None]
  - RENAL FAILURE CHRONIC [None]
  - LEUKOCYTOSIS [None]
  - ESCHERICHIA BACTERAEMIA [None]
  - ASTHENIA [None]
  - FEELING ABNORMAL [None]
  - CONSTIPATION [None]
  - ERYTHEMA [None]
  - NEOPLASM MALIGNANT [None]
  - ABSCESS [None]
  - FACIAL PAIN [None]
  - HYPOALBUMINAEMIA [None]
  - OSTEOMYELITIS [None]
  - FAECALOMA [None]
  - PAIN [None]
  - ORAL CANDIDIASIS [None]
  - SKIN ULCER [None]
  - OSTEONECROSIS OF JAW [None]
  - ORAL DISORDER [None]
  - WEIGHT DECREASED [None]
  - DEHYDRATION [None]
  - BLOOD UREA INCREASED [None]
  - ANAEMIA OF CHRONIC DISEASE [None]
  - HYPERKALAEMIA [None]
  - NEUTROPENIA [None]
  - LEFT VENTRICULAR HYPERTROPHY [None]
  - HYPONATRAEMIA [None]
  - BACK PAIN [None]
  - DEATH [None]
  - INSOMNIA [None]
  - CELLULITIS [None]
  - CARDIAC MURMUR [None]
  - ABDOMINAL DISCOMFORT [None]
  - DIARRHOEA [None]
  - HAEMANGIOMA OF LIVER [None]
  - INFLAMMATION [None]
  - DECREASED APPETITE [None]
  - PATHOLOGICAL FRACTURE [None]
  - BLOOD CREATININE INCREASED [None]
  - ASCITES [None]
  - ENDOCARDITIS [None]
  - PYREXIA [None]
  - MUCOSAL INFLAMMATION [None]
  - HYPOCALCAEMIA [None]
